FAERS Safety Report 9362415 (Version 1)
Quarter: 2013Q2

REPORT INFORMATION
  Report Type: Spontaneous
  Country: US (occurrence: US)
  Receive Date: 20130622
  Receipt Date: 20130622
  Transmission Date: 20140414
  Serious: No
  Sender: FDA-Public Use
  Company Number: US-TEVA-409344USA

PATIENT
  Age: 68 Year
  Sex: Female
  Weight: 59.02 kg

DRUGS (12)
  1. PROAIR HFA [Suspect]
     Indication: CHRONIC OBSTRUCTIVE PULMONARY DISEASE
     Dosage: 2 PUFFS EVERY 8 HOURS
     Route: 055
     Dates: start: 20120501
  2. PROAIR HFA [Suspect]
     Indication: ASTHMA
  3. ATORVASTATIN [Concomitant]
     Indication: HYPERCHOLESTEROLAEMIA
     Dosage: 40 MILLIGRAM DAILY;
     Route: 048
  4. BYSTOLIC [Concomitant]
     Indication: HYPERTENSION
     Dosage: 5 MILLIGRAM DAILY;
     Route: 048
  5. EPLERENONE [Concomitant]
     Indication: PITUITARY TUMOUR
     Dosage: 100 MILLIGRAM DAILY;
     Route: 048
  6. LEVOXYL [Concomitant]
     Indication: HYPOTHYROIDISM
     Dosage: 150 MICROGRAM DAILY;
     Route: 048
  7. FOLBEE [Concomitant]
     Indication: MEDICAL DIET
     Dosage: 1 TABLET DAILY;
     Route: 048
  8. ASPIRIN [Concomitant]
     Indication: PROPHYLAXIS
     Dosage: 81 MILLIGRAM DAILY;
     Route: 048
  9. SYMBICORT [Concomitant]
     Indication: ASTHMA
     Dosage: 1 PUFF
     Route: 055
  10. SYMBICORT [Concomitant]
     Indication: CHRONIC OBSTRUCTIVE PULMONARY DISEASE
  11. SPIRIVA [Concomitant]
     Indication: CHRONIC OBSTRUCTIVE PULMONARY DISEASE
     Dosage: 1 PUFF
     Route: 055
  12. SPIRIVA [Concomitant]
     Indication: ASTHMA

REACTIONS (2)
  - Drug effect decreased [Not Recovered/Not Resolved]
  - Drug prescribing error [Unknown]
